FAERS Safety Report 14332655 (Version 9)
Quarter: 2019Q2

REPORT INFORMATION
  Report Type: Report from Study
  Country: BE (occurrence: BE)
  Receive Date: 20171228
  Receipt Date: 20190405
  Transmission Date: 20190711
  Serious: No
  Sender: FDA-Public Use
  Company Number: BE-SA-2016SA123993

PATIENT
  Age: 38 Year
  Sex: Male

DRUGS (9)
  1. SOLU-MEDROL [Concomitant]
     Active Substance: METHYLPREDNISOLONE SODIUM SUCCINATE
     Indication: PROPHYLAXIS
     Dosage: 500 MG,QD
     Route: 042
     Dates: start: 20160613, end: 20160613
  2. ALEMTUZUMAB [Suspect]
     Active Substance: ALEMTUZUMAB
     Indication: MULTIPLE SCLEROSIS RELAPSE
     Dosage: 12 MG,QD
     Route: 041
     Dates: start: 20160613, end: 20160615
  3. OMEPRAZOLE. [Concomitant]
     Active Substance: OMEPRAZOLE
     Indication: PROPHYLAXIS
     Dosage: 20 MG,QD
     Route: 048
     Dates: start: 20160613, end: 20160616
  4. SOLU-MEDROL [Concomitant]
     Active Substance: METHYLPREDNISOLONE SODIUM SUCCINATE
     Dosage: 125 MG,QD
     Route: 042
     Dates: start: 20160615, end: 20160616
  5. CETIRIZINE [Concomitant]
     Active Substance: CETIRIZINE HYDROCHLORIDE
     Indication: PROPHYLAXIS
     Dosage: 10 MG,QD
     Route: 048
     Dates: start: 20160613, end: 20160616
  6. SOLU-MEDROL [Concomitant]
     Active Substance: METHYLPREDNISOLONE SODIUM SUCCINATE
     Dosage: 250 MG,QD
     Route: 042
     Dates: start: 20160614, end: 20160614
  7. ZANTAC [Concomitant]
     Active Substance: RANITIDINE HYDROCHLORIDE
     Indication: PROPHYLAXIS
     Dosage: 150 MG,QD
     Route: 048
     Dates: start: 20160613, end: 20160616
  8. PERFUSALGAN [Concomitant]
     Active Substance: ACETAMINOPHEN
     Indication: PROPHYLAXIS
     Dosage: 1 G,QD
     Route: 042
     Dates: start: 20160613, end: 20160613
  9. ACICLOVIR [Concomitant]
     Active Substance: ACYCLOVIR
     Indication: PROPHYLAXIS
     Dosage: 400 MG,QD
     Route: 048
     Dates: start: 20160613

REACTIONS (6)
  - Depressive symptom [Not Recovered/Not Resolved]
  - Onychomycosis [Recovering/Resolving]
  - Immune thrombocytopenic purpura [Recovered/Resolved]
  - Erectile dysfunction [Recovering/Resolving]
  - Headache [Recovered/Resolved]
  - Insomnia [Not Recovered/Not Resolved]

NARRATIVE: CASE EVENT DATE: 20160614
